FAERS Safety Report 5020731-2 (Version None)
Quarter: 2006Q2

REPORT INFORMATION
  Report Type: 
  Country: None (occurrence: None)
  Receive Date: 20060601
  Receipt Date: 20060518
  Transmission Date: 20061013
  Serious: Yes (Hospitalization)
  Sender: FDA-Public Use
  Company Number: 14075

PATIENT
  Age: 43 Year
  Sex: Male
  Weight: 98 kg

DRUGS (8)
  1. PROPOFOL [Suspect]
     Indication: SENSORY DISTURBANCE
     Dosage: 180 MG ONCE IV
     Route: 042
     Dates: start: 20060321
  2. MIDAZOLAM HCL [Suspect]
     Indication: SENSORY DISTURBANCE
     Dosage: 3 MG IV
     Route: 042
  3. ALFENTANIL [Suspect]
     Indication: SENSORY DISTURBANCE
     Dosage: 1 MG IV
     Route: 042
     Dates: start: 20060321
  4. ZYRTEC [Suspect]
  5. MORPHINE [Suspect]
     Dosage: 5 MG IV
     Route: 042
     Dates: start: 20060321
  6. CO-PHENYLCAINE [Concomitant]
  7. SEVOFLURANE [Concomitant]
  8. LAMISIL [Concomitant]

REACTIONS (3)
  - DEPRESSED LEVEL OF CONSCIOUSNESS [None]
  - EYE ROLLING [None]
  - SOMNOLENCE [None]
